FAERS Safety Report 6055544-6 (Version None)
Quarter: 2009Q1

REPORT INFORMATION
  Report Type: 
  Country: None (occurrence: None)
  Receive Date: 20090128
  Receipt Date: 20090119
  Transmission Date: 20090719
  Serious: Yes (Hospitalization)
  Sender: FDA-Public Use
  Company Number: B0554868A

PATIENT
  Age: 56 Year
  Sex: Male
  Weight: 71 kg

DRUGS (10)
  1. LAMICTAL [Suspect]
     Indication: DRUG USE FOR UNKNOWN INDICATION
     Dosage: 50MG PER DAY
     Route: 048
     Dates: start: 20080601
  2. TEMODAL [Suspect]
     Indication: GLIOBLASTOMA
     Dosage: 140MG PER DAY
     Route: 048
     Dates: start: 20080805, end: 20080917
  3. BACTRIM [Suspect]
     Dosage: 1TAB PER DAY
     Route: 048
     Dates: start: 20080830
  4. CORTANCYL [Concomitant]
     Dosage: 20MG PER DAY
     Route: 048
     Dates: start: 20080801
  5. AMLOR [Concomitant]
     Indication: HYPERTENSION
     Route: 048
  6. SECTRAL [Concomitant]
     Indication: HYPERTENSION
     Route: 048
  7. NOVOSEVEN [Concomitant]
  8. INSULIN [Concomitant]
  9. ZOMETA [Concomitant]
     Route: 042
  10. RADIOTHERAPY [Concomitant]
     Indication: GLIOBLASTOMA
     Dates: start: 20080804

REACTIONS (8)
  - ALANINE AMINOTRANSFERASE INCREASED [None]
  - ASPARTATE AMINOTRANSFERASE INCREASED [None]
  - BLOOD ALKALINE PHOSPHATASE INCREASED [None]
  - BLOOD BILIRUBIN INCREASED [None]
  - CHOLESTASIS [None]
  - GAMMA-GLUTAMYLTRANSFERASE INCREASED [None]
  - HEPATOCELLULAR INJURY [None]
  - SERUM FERRITIN INCREASED [None]
